FAERS Safety Report 15953857 (Version 1)
Quarter: 2019Q1

REPORT INFORMATION
  Report Type: Spontaneous
  Country: US (occurrence: US)
  Receive Date: 20190212
  Receipt Date: 20190212
  Transmission Date: 20190417
  Serious: No
  Sender: FDA-Public Use
  Company Number: US-ELI_LILLY_AND_COMPANY-US201902004105

PATIENT
  Age: 40 Year
  Sex: Male

DRUGS (1)
  1. EMGALITY [Suspect]
     Active Substance: GALCANEZUMAB-GNLM
     Indication: PRODUCT USED FOR UNKNOWN INDICATION
     Dosage: 240 MG, SINGLE
     Route: 058
     Dates: start: 20190205

REACTIONS (13)
  - Panic attack [Unknown]
  - Lymph node pain [Unknown]
  - Blood pressure increased [Unknown]
  - Ear pain [Unknown]
  - Headache [Recovered/Resolved]
  - Malaise [Unknown]
  - Decreased appetite [Unknown]
  - Eye irritation [Not Recovered/Not Resolved]
  - Ocular hyperaemia [Unknown]
  - Emotional disorder [Unknown]
  - Crying [Unknown]
  - Nausea [Unknown]
  - Agitation [Unknown]

NARRATIVE: CASE EVENT DATE: 20190205
